FAERS Safety Report 7980939-0 (Version None)
Quarter: 2011Q4

REPORT INFORMATION
  Report Type: 
  Country: None (occurrence: None)
  Receive Date: 20111215
  Receipt Date: 20111207
  Transmission Date: 20120403
  Serious: Yes (Hospitalization)
  Sender: FDA-Public Use
  Company Number: US-BIOGENIDEC-2011BI027214

PATIENT
  Age: 58 Year
  Sex: Female

DRUGS (2)
  1. AVONEX [Suspect]
     Indication: MULTIPLE SCLEROSIS
     Route: 030
     Dates: start: 20100813
  2. AVONEX [Suspect]
     Route: 030

REACTIONS (5)
  - STAPHYLOCOCCAL INFECTION [None]
  - THROMBOSIS [None]
  - HAEMORRHOIDS [None]
  - LIMB INJURY [None]
  - HAEMATOMA [None]
